FAERS Safety Report 4600616-3 (Version None)
Quarter: 2005Q1

REPORT INFORMATION
  Report Type: 
  Country: None (occurrence: None)
  Receive Date: 20050304
  Receipt Date: 20050221
  Transmission Date: 20050727
  Serious: Yes (Hospitalization)
  Sender: FDA-Public Use
  Company Number: 2005034994

PATIENT
  Age: 60 Year
  Sex: Female
  Weight: 94 kg

DRUGS (9)
  1. AMLODIPINE [Suspect]
     Indication: ILL-DEFINED DISORDER
     Dosage: (5 MG),ORAL
     Route: 048
  2. GLYCERYL TRINITRATE PATCH (GLYCERYL TRINITRATE) (GLYCERYL TRINITRATE) [Suspect]
     Indication: ILL-DEFINED DISORDER
     Dosage: TOPICAL
     Route: 061
  3. FUROSEMIDE [Suspect]
     Indication: ILL-DEFINED DISORDER
     Dosage: (500 MG), ORAL
     Route: 048
  4. PRAVASTATIN SODIUM [Suspect]
     Indication: ILL-DEFINED DISORDER
     Dosage: ORAL
     Route: 048
  5. ACETYLSALICYLIC ACID SRT [Suspect]
     Indication: ARTERIAL STENOSIS
     Dosage: 250 MG (250 MG, 1 IN 1 D), ORAL
     Route: 048
     Dates: start: 20030701
  6. AMIODARONE HCL [Suspect]
     Indication: ILL-DEFINED DISORDER
     Dosage: (200 MG), ORAL
     Route: 048
  7. OMEPRAZOLE [Concomitant]
  8. ALPRAZOLAM [Concomitant]
  9. HYDROXYZINE HCL [Concomitant]

REACTIONS (4)
  - CYANOSIS [None]
  - EOSINOPHILIA [None]
  - FAT EMBOLISM [None]
  - RETINAL VASCULAR DISORDER [None]
